FAERS Safety Report 21838051 (Version 1)
Quarter: 2023Q1

REPORT INFORMATION
  Report Type: Spontaneous
  Country: US (occurrence: None)
  Receive Date: 20230107
  Receipt Date: 20230107
  Transmission Date: 20230418
  Serious: Yes (Other)
  Sender: FDA-Public Use
  Company Number: None

PATIENT
  Age: 26 Year
  Sex: Male
  Weight: 78.75 kg

DRUGS (7)
  1. CREST PRO-HEALTH (STANNOUS FLUORIDE) [Suspect]
     Active Substance: STANNOUS FLUORIDE
     Indication: Dental care
     Dosage: OTHER QUANTITY : 1 TABLESPOON(S);?FREQUENCY : TWICE A DAY;?
     Route: 048
  2. UNSPECIFIED INGREDIENT [Concomitant]
     Active Substance: UNSPECIFIED INGREDIENT
  3. TYLENOL [Concomitant]
     Active Substance: ACETAMINOPHEN
  4. IBUPROFEN [Concomitant]
     Active Substance: IBUPROFEN
  5. CREST 3D WHITE [Suspect]
     Active Substance: SODIUM FLUORIDE
  6. SODIUM MONOFLUOROPHOSPATE [Suspect]
     Active Substance: SODIUM MONOFLUOROPHOSPHATE
  7. SENSODYNE [Suspect]
     Active Substance: POTASSIUM NITRATE\SODIUM FLUORIDE

REACTIONS (3)
  - Mouth ulceration [None]
  - Tooth loss [None]
  - Product complaint [None]

NARRATIVE: CASE EVENT DATE: 20090210
